FAERS Safety Report 7509110-3 (Version None)
Quarter: 2011Q2

REPORT INFORMATION
  Report Type: 
  Country: None (occurrence: None)
  Receive Date: 20110527
  Receipt Date: 20110516
  Transmission Date: 20111010
  Serious: Yes (Hospitalization, Other)
  Sender: FDA-Public Use
  Company Number: US-CELGENEUS-163-20785-11042708

PATIENT
  Sex: Female

DRUGS (6)
  1. THALOMID [Suspect]
     Dosage: 100 MILLIGRAM
     Route: 048
     Dates: start: 20101001, end: 20110328
  2. TRICOR [Concomitant]
     Route: 065
  3. DECADRON [Concomitant]
     Dosage: 4 MILLIGRAM
     Route: 065
  4. ATENOLOL [Concomitant]
     Route: 065
  5. METFORMIN HCL [Concomitant]
     Route: 065
  6. ZOCOR [Concomitant]
     Route: 065

REACTIONS (2)
  - FALL [None]
  - FEMUR FRACTURE [None]
